FAERS Safety Report 5076276-7 (Version None)
Quarter: 2006Q3

REPORT INFORMATION
  Report Type: 
  Country: None (occurrence: None)
  Receive Date: 20060804
  Receipt Date: 20060721
  Transmission Date: 20061208
  Serious: Yes (Hospitalization, Other)
  Sender: FDA-Public Use
  Company Number: 2006BH012081

PATIENT
  Age: 40 Year
  Sex: Male

DRUGS (8)
  1. METHYLPREDNISOLONE [Suspect]
     Indication: PULMONARY FUNCTION TEST ABNORMAL
     Dosage: 125 MG; 2X A DAY
  2. CISATRACURIUM             (CISATRACURIUM) [Suspect]
     Indication: CHEST INJURY
     Dosage: 42 UG/KG; MIN; IV  75 UG/KG; MIN; IV
     Route: 042
  3. RANITIDINE [Concomitant]
  4. FUROSEMIDE [Concomitant]
  5. MEROPENEM [Concomitant]
  6. ENOXAPARIN SODIUM [Concomitant]
  7. TEICOPLANIN [Concomitant]
  8. AMBROXOL [Concomitant]

REACTIONS (3)
  - POLYNEUROPATHY [None]
  - QUADRIPLEGIA [None]
  - WALKING AID USER [None]
